FAERS Safety Report 19453197 (Version 1)
Quarter: 2021Q2

REPORT INFORMATION
  Report Type: Spontaneous
  Country: US (occurrence: US)
  Receive Date: 20210623
  Receipt Date: 20210623
  Transmission Date: 20210717
  Serious: Yes (Other)
  Sender: FDA-Public Use
  Company Number: US-SA-2021SA198448

PATIENT
  Sex: Male

DRUGS (1)
  1. ALLEGRA ALLERGY [Suspect]
     Active Substance: FEXOFENADINE HYDROCHLORIDE
     Indication: SINUSITIS
     Dosage: 180 MG, QH
     Route: 065

REACTIONS (6)
  - Drug abuser [Unknown]
  - Drug ineffective [Unknown]
  - Feeling abnormal [Unknown]
  - Mental disorder [Unknown]
  - Anxiety [Unknown]
  - Extra dose administered [Unknown]
